FAERS Safety Report 7628769-3 (Version None)
Quarter: 2011Q3

REPORT INFORMATION
  Report Type: 
  Country: None (occurrence: None)
  Receive Date: 20110722
  Receipt Date: 20110711
  Transmission Date: 20111222
  Serious: Yes (Life-Threatening, Hospitalization, Other)
  Sender: FDA-Public Use
  Company Number: US-BAYER-2011-035765

PATIENT
  Age: 35 Year
  Sex: Female
  Weight: 78 kg

DRUGS (18)
  1. YASMIN [Suspect]
     Indication: POLYCYSTIC OVARIES
  2. PAIN MEDIATIONS [Concomitant]
     Dosage: UNK
     Dates: start: 20071001
  3. TOPAMAX [Concomitant]
     Indication: INTRACRANIAL PRESSURE INCREASED
     Dosage: UNK
     Dates: start: 20070501
  4. BENADRYL [Concomitant]
     Dosage: UNK
     Dates: start: 20070501
  5. FLUIDS [Concomitant]
     Dosage: UNK
     Dates: start: 20071001
  6. TORADOL [Concomitant]
     Dosage: UNK
     Dates: start: 20070501
  7. KEPPRA [Concomitant]
     Dosage: UNK
     Dates: start: 20070501
  8. FERROUS SULFATE TAB [Concomitant]
     Dosage: UNK
     Dates: start: 20070501
  9. ANTIBIOTICS [Concomitant]
  10. YASMIN [Suspect]
     Indication: MENORRHAGIA
     Dosage: UNK
     Dates: start: 20060413, end: 20070504
  11. ZYRTEC [Concomitant]
     Indication: MULTIPLE ALLERGIES
     Dosage: 10 MG, QD
     Dates: start: 20030101
  12. FENTANYL [Concomitant]
     Dosage: UNK
     Dates: start: 20070501
  13. OXYCODONE HCL [Concomitant]
     Dosage: UNK
     Dates: start: 20070501
  14. SPIRONOLACTONE [Concomitant]
     Indication: POLYCYSTIC OVARIES
     Dosage: 200 MG, QD
     Dates: start: 20060413
  15. ROCEPHIN [Concomitant]
     Dosage: UNK
     Dates: start: 20070501
  16. OXYCONTIN [Concomitant]
     Dosage: UNK
     Dates: start: 20070501
  17. SPIRONOLACTONE [Concomitant]
     Dosage: 200 MG, QD
     Dates: start: 20060510
  18. ACETAZOLAMIDE [Concomitant]
     Indication: INTRACRANIAL PRESSURE INCREASED
     Dosage: UNK
     Dates: start: 20090501

REACTIONS (17)
  - DIZZINESS [None]
  - SUPERIOR SAGITTAL SINUS THROMBOSIS [None]
  - PARANOIA [None]
  - NAUSEA [None]
  - DELUSION [None]
  - HEADACHE [None]
  - TINNITUS [None]
  - TUNNEL VISION [None]
  - AMNESIA [None]
  - DIPLOPIA [None]
  - SUBDURAL HAEMATOMA [None]
  - CEREBRAL HAEMORRHAGE [None]
  - VISION BLURRED [None]
  - VOMITING [None]
  - INTRACRANIAL PRESSURE INCREASED [None]
  - MUSCULOSKELETAL STIFFNESS [None]
  - INJURY [None]
